FAERS Safety Report 19356974 (Version 1)
Quarter: 2021Q2

REPORT INFORMATION
  Report Type: Spontaneous
  Country: US (occurrence: US)
  Receive Date: 20210602
  Receipt Date: 20210602
  Transmission Date: 20210717
  Serious: Yes (Other)
  Sender: FDA-Public Use
  Company Number: US-STRIDES ARCOLAB LIMITED-2021SP002663

PATIENT
  Age: 50 Year
  Sex: Female

DRUGS (4)
  1. TRIAMCINOLONE ACETONIDE. [Suspect]
     Active Substance: TRIAMCINOLONE ACETONIDE
     Indication: CUTANEOUS SARCOIDOSIS
     Dosage: 0.1 PERCENT CREAM FOR UP TO 2 WEEKS AT A TIME
     Route: 061
  2. METHOTREXATE. [Suspect]
     Active Substance: METHOTREXATE
     Indication: CUTANEOUS SARCOIDOSIS
     Dosage: 15 MILLIGRAM WEEKLY FOR 3?MONTH TRIALS
     Route: 065
  3. DOXYCYCLINE. [Suspect]
     Active Substance: DOXYCYCLINE
     Indication: CUTANEOUS SARCOIDOSIS
     Dosage: 50 MILLIGRAM, BID AFTER 3?MONTH TRIALS
     Route: 065
  4. TACROLIMUS. [Suspect]
     Active Substance: TACROLIMUS
     Indication: CUTANEOUS SARCOIDOSIS
     Dosage: 0.1 PERCENT
     Route: 061

REACTIONS (1)
  - Drug ineffective for unapproved indication [Unknown]
